FAERS Safety Report 5479803-0 (Version None)
Quarter: 2007Q4

REPORT INFORMATION
  Report Type: 
  Country: None (occurrence: None)
  Receive Date: 20071008
  Receipt Date: 20070927
  Transmission Date: 20080405
  Serious: Yes (Hospitalization)
  Sender: FDA-Public Use
  Company Number: US-SHR-US-2007-022306

PATIENT
  Age: 60 Year
  Sex: Female
  Weight: 63.492 kg

DRUGS (3)
  1. BETASERON [Suspect]
     Indication: SECONDARY PROGRESSIVE MULTIPLE SCLEROSIS
     Dosage: 8 MIU, EVERY 2D
     Route: 058
     Dates: start: 20040909, end: 20070529
  2. BETASERON [Suspect]
     Dates: start: 20070715
  3. ANTIBIOTICS [Concomitant]

REACTIONS (1)
  - FUNGAL RASH [None]
